FAERS Safety Report 18149710 (Version 1)
Quarter: 2020Q3

REPORT INFORMATION
  Report Type: Spontaneous
  Country: CN (occurrence: CN)
  Receive Date: 20200814
  Receipt Date: 20200814
  Transmission Date: 20201103
  Serious: Yes (Other)
  Sender: FDA-Public Use
  Company Number: CN-ROCHE-2657804

PATIENT
  Age: 55 Year
  Sex: Female

DRUGS (4)
  1. NEDAPLATIN [Concomitant]
     Active Substance: NEDAPLATIN
     Indication: LUNG ADENOCARCINOMA
     Dosage: 27 DEC 2018 AND 17 JAN 2019
  2. AVASTIN [Suspect]
     Active Substance: BEVACIZUMAB
     Indication: LUNG ADENOCARCINOMA
     Dosage: 27 DEC 2018 AND 17 JAN 2019
     Route: 065
  3. PEMETREXED. [Concomitant]
     Active Substance: PEMETREXED
     Indication: LUNG ADENOCARCINOMA
     Dosage: 27 DEC 2018 AND 17 JAN 2019
  4. ALECENSA [Suspect]
     Active Substance: ALECTINIB HYDROCHLORIDE
     Indication: LUNG ADENOCARCINOMA
     Route: 048
     Dates: start: 20190212

REACTIONS (3)
  - Pleural effusion [Unknown]
  - Gastrointestinal disorder [Unknown]
  - Myelosuppression [Unknown]
